FAERS Safety Report 5212230-X (Version None)
Quarter: 2007Q1

REPORT INFORMATION
  Report Type: 
  Country: None (occurrence: None)
  Receive Date: 20070118
  Receipt Date: 20070109
  Transmission Date: 20070707
  Serious: Yes (Hospitalization)
  Sender: FDA-Public Use
  Company Number: FR-GILEAD-2007-0011011

PATIENT
  Age: 47 Year
  Sex: Male
  Weight: 77 kg

DRUGS (9)
  1. EMTRIVA [Suspect]
     Route: 048
     Dates: start: 20060101
  2. VIREAD [Suspect]
     Route: 048
     Dates: start: 20030101
  3. ZELITREX [Suspect]
     Route: 048
     Dates: start: 20060201
  4. NORVIR [Suspect]
     Route: 048
     Dates: start: 20030101
  5. REYATAZ [Suspect]
     Dates: start: 20030101
  6. BACLOFENE IREX [Suspect]
     Route: 048
  7. MIXTARD HUMAN 70/30 [Concomitant]
  8. ATATRAX [Concomitant]
  9. BACTRIM [Concomitant]

REACTIONS (3)
  - HAEMOGLOBINAEMIA [None]
  - PHOTOSENSITIVITY REACTION [None]
  - PRURITUS [None]
